FAERS Safety Report 7591839-2 (Version None)
Quarter: 2011Q3

REPORT INFORMATION
  Report Type: 
  Country: None (occurrence: None)
  Receive Date: 20110701
  Receipt Date: 20110701
  Transmission Date: 20111222
  Serious: No
  Sender: FDA-Public Use
  Company Number: None

PATIENT
  Sex: Female
  Weight: 66 kg

DRUGS (2)
  1. HEPARIN SODIUM [Suspect]
     Indication: CARDIAC OPERATION
     Dosage: X1 IV
     Route: 042
     Dates: start: 20110614
  2. HEPARIN SODIUM [Suspect]
     Indication: HEART VALVE OPERATION
     Dosage: X1 IV
     Route: 042
     Dates: start: 20110614

REACTIONS (1)
  - DRUG EFFECT DECREASED [None]
